FAERS Safety Report 19322047 (Version 1)
Quarter: 2021Q2

REPORT INFORMATION
  Report Type: Spontaneous
  Country: PL (occurrence: PL)
  Receive Date: 20210528
  Receipt Date: 20210528
  Transmission Date: 20210717
  Serious: Yes (Death, Other)
  Sender: FDA-Public Use
  Company Number: PL-009507513-2105POL003941

PATIENT
  Age: 83 Year
  Sex: Male

DRUGS (8)
  1. IMIPENEM AND CILASTATIN [Suspect]
     Active Substance: CILASTATIN SODIUM\IMIPENEM
     Indication: PNEUMONIA
  2. CLINDAMYCIN. [Suspect]
     Active Substance: CLINDAMYCIN
     Indication: PNEUMONIA
     Dosage: CLINDAMYCIN 600
     Route: 042
     Dates: start: 20210316, end: 20210319
  3. BIODACYNA [Suspect]
     Active Substance: AMIKACIN SULFATE
     Indication: RESPIRATORY FAILURE
     Dosage: BIODACYNA 1.0
     Route: 042
     Dates: start: 20210302, end: 20210311
  4. IMIPENEM AND CILASTATIN [Suspect]
     Active Substance: CILASTATIN SODIUM\IMIPENEM
     Indication: RESPIRATORY FAILURE
     Dosage: UNK
     Route: 042
     Dates: start: 20210310, end: 20210316
  5. BIODACYNA [Suspect]
     Active Substance: AMIKACIN SULFATE
     Indication: PNEUMONIA
  6. CLINDAMYCIN. [Suspect]
     Active Substance: CLINDAMYCIN
     Indication: RESPIRATORY FAILURE
  7. BIOTRAKSON [Suspect]
     Active Substance: CEFTRIAXONE SODIUM
     Indication: RESPIRATORY FAILURE
     Dosage: 2 GRAM
     Route: 042
     Dates: start: 20210301, end: 20210311
  8. BIOTRAKSON [Suspect]
     Active Substance: CEFTRIAXONE SODIUM
     Indication: PNEUMONIA

REACTIONS (1)
  - Diarrhoea [Fatal]
